FAERS Safety Report 5256208-9 (Version None)
Quarter: 2007Q1

REPORT INFORMATION
  Report Type: 
  Country: None (occurrence: None)
  Receive Date: 20070306
  Receipt Date: 20070301
  Transmission Date: 20070707
  Serious: Yes (Death)
  Sender: FDA-Public Use
  Company Number: PHBS2007US03686

PATIENT
  Age: 49 Year
  Sex: Female

DRUGS (2)
  1. LISINOPRIL [Suspect]
     Indication: HYPERTENSION
     Dosage: 10 MG/DAY
  2. HYDROCHLOROTHIAZIDE [Suspect]
     Indication: HYPERTENSION
     Dosage: 12.5 MG/DAY

REACTIONS (17)
  - ABDOMINAL PAIN [None]
  - ABDOMINAL TENDERNESS [None]
  - ACUTE RESPIRATORY DISTRESS SYNDROME [None]
  - ALANINE AMINOTRANSFERASE INCREASED [None]
  - ASPARTATE AMINOTRANSFERASE INCREASED [None]
  - BLOOD CREATININE INCREASED [None]
  - HAEMOGLOBIN DECREASED [None]
  - HEART RATE INCREASED [None]
  - INTUBATION [None]
  - LAPAROTOMY [None]
  - MULTI-ORGAN FAILURE [None]
  - PANCREATITIS NECROTISING [None]
  - PLATELET COUNT INCREASED [None]
  - RESPIRATORY RATE INCREASED [None]
  - SHOCK [None]
  - VOMITING [None]
  - WHITE BLOOD CELL COUNT INCREASED [None]
